FAERS Safety Report 16442140 (Version 1)
Quarter: 2019Q2

REPORT INFORMATION
  Report Type: Report from Study
  Country: None (occurrence: US)
  Receive Date: 20190617
  Receipt Date: 20190617
  Transmission Date: 20190711
  Serious: No
  Sender: FDA-Public Use
  Company Number: US-US WORLDMEDS, LLC-USW201901-000083

PATIENT
  Sex: Female

DRUGS (7)
  1. APOKYN [Suspect]
     Active Substance: APOMORPHINE HYDROCHLORIDE
     Route: 058
     Dates: start: 20150101
  2. APOKYN [Suspect]
     Active Substance: APOMORPHINE HYDROCHLORIDE
  3. AMANTIDINE [Concomitant]
     Active Substance: AMANTADINE
  4. CABERGOLINE. [Concomitant]
     Active Substance: CABERGOLINE
  5. AZILECT [Concomitant]
     Active Substance: RASAGILINE MESYLATE
  6. APOKYN [Suspect]
     Active Substance: APOMORPHINE HYDROCHLORIDE
     Indication: PARKINSON^S DISEASE
     Route: 058
     Dates: start: 20150101
  7. MIRAPEX [Concomitant]
     Active Substance: PRAMIPEXOLE DIHYDROCHLORIDE

REACTIONS (3)
  - Injection site reaction [Recovered/Resolved]
  - On and off phenomenon [Unknown]
  - Injection site nodule [Recovered/Resolved]
